FAERS Safety Report 8157183-X (Version None)
Quarter: 2012Q1

REPORT INFORMATION
  Report Type: 
  Country: None (occurrence: None)
  Receive Date: 20120209
  Receipt Date: 20120203
  Transmission Date: 20120608
  Serious: Yes (Other)
  Sender: FDA-Public Use
  Company Number: 2012031018

PATIENT
  Age: 7 Year
  Sex: Male
  Weight: 26.7622 kg

DRUGS (2)
  1. HIZENTRA [Suspect]
     Indication: HYPOGAMMAGLOBULINAEMIA
     Dosage: (4 G 1X/WEEK, 4 GM (20 ML) ON ONE TO FOUR SITES OVER ONE TO TWO HOURS SUBCUTANEOUS)
     Route: 058
     Dates: start: 20110831
  2. HIZENTRA [Suspect]
     Indication: HYPOGAMMAGLOBULINAEMIA
     Dosage: (4 G 1X/WEEK, 4 GM (20 ML) ON ONE TO FOUR SITES OVER ONE TO TWO HOURS SUBCUTANEOUS)
     Route: 058
     Dates: start: 20120203, end: 20120203

REACTIONS (1)
  - SPLENIC LESION [None]
